FAERS Safety Report 8251549-5 (Version None)
Quarter: 2012Q1

REPORT INFORMATION
  Report Type: 
  Country: None (occurrence: None)
  Receive Date: 20120328
  Receipt Date: 20120314
  Transmission Date: 20120608
  Serious: Yes (Other)
  Sender: FDA-Public Use
  Company Number: 2012-1073

PATIENT
  Age: 63 Year
  Sex: Male
  Weight: 92.5 kg

DRUGS (2)
  1. VITAMIN TAB [Concomitant]
  2. DYSPORT [Suspect]
     Indication: MUSCLE SPASTICITY
     Dosage: 4000 UNITS (4000 UNITS,SINGLE CYCLE), INTRAMUSCULAR
     Route: 030
     Dates: start: 20120208, end: 20120208

REACTIONS (10)
  - BOTULISM [None]
  - OVERDOSE [None]
  - DIZZINESS [None]
  - CONSTIPATION [None]
  - GAIT DISTURBANCE [None]
  - VISION BLURRED [None]
  - MUSCULAR WEAKNESS [None]
  - DIPLOPIA [None]
  - DRY MOUTH [None]
  - IATROGENIC INJURY [None]
